FAERS Safety Report 6414480-3 (Version None)
Quarter: 2009Q4

REPORT INFORMATION
  Report Type: 
  Country: None (occurrence: None)
  Receive Date: 20091026
  Receipt Date: 20091013
  Transmission Date: 20100525
  Serious: Yes (Other)
  Sender: FDA-Public Use
  Company Number: NZ-ELI_LILLY_AND_COMPANY-NZ200910005781

PATIENT
  Age: 67 Year
  Sex: Female

DRUGS (5)
  1. PROZAC [Suspect]
     Indication: DEPRESSION
     Dosage: 20 MG, DAILY (1/D)
  2. CARBAMAZEPINE [Interacting]
     Dosage: 0.817 MG, DAILY (1/D) FOR 10 MONTHS
  3. CAPTOPRIL [Concomitant]
     Dosage: 25MG, DAILY (1/D) FOR 2 YEARS
  4. TRIMIPRAMINE [Interacting]
     Dosage: 100 MG, DAILY (1/D) FOR 8 YEARS
  5. LITHIUM CARBONATE [Interacting]
     Dosage: 750 MG, DAILY (1/D) FOR 8 YEARS

REACTIONS (2)
  - DRUG INTERACTION [None]
  - EXTRAPYRAMIDAL DISORDER [None]
